FAERS Safety Report 9501818 (Version 1)
Quarter: 2013Q3

REPORT INFORMATION
  Report Type: Report from Study
  Country: US (occurrence: US)
  Receive Date: 20130905
  Receipt Date: 20130905
  Transmission Date: 20140515
  Serious: Yes (Other)
  Sender: FDA-Public Use
  Company Number: US-ABBOTT-13P-163-1141228-00

PATIENT
  Sex: Female

DRUGS (10)
  1. HUMIRA [Suspect]
     Indication: ANKYLOSING SPONDYLITIS
  2. ACYCLOVIR [Concomitant]
     Indication: HERPES VIRUS INFECTION
     Route: 048
  3. LANSOPRAZOLE [Concomitant]
     Indication: GASTRIC DISORDER
     Route: 048
  4. LANSOPRAZOLE [Concomitant]
     Indication: PROPHYLAXIS
  5. NAPROXEN [Concomitant]
     Indication: ARTHRITIS
     Route: 048
  6. NAPROXEN [Concomitant]
     Indication: ANKYLOSING SPONDYLITIS
  7. RANITIDINE [Concomitant]
     Indication: GASTRIC DISORDER
     Route: 048
  8. RANITIDINE [Concomitant]
     Indication: ABDOMINAL PAIN UPPER
  9. RANITIDINE [Concomitant]
     Indication: PROPHYLAXIS
  10. VAGIFEM [Concomitant]
     Indication: VULVOVAGINAL DRYNESS

REACTIONS (2)
  - Upper limb fracture [Not Recovered/Not Resolved]
  - Pain [Not Recovered/Not Resolved]
